FAERS Safety Report 17581429 (Version 1)
Quarter: 2020Q1

REPORT INFORMATION
  Report Type: Spontaneous
  Country: US (occurrence: US)
  Receive Date: 20200323
  Receipt Date: 20200323
  Transmission Date: 20200409
  Serious: Yes (Hospitalization)
  Sender: FDA-Public Use
  Company Number: None

PATIENT
  Age: 74 Year
  Sex: Female

DRUGS (14)
  1. NASACORT [Concomitant]
     Active Substance: TRIAMCINOLONE ACETONIDE
  2. ESBRIET [Suspect]
     Active Substance: PIRFENIDONE
     Indication: IDIOPATHIC PULMONARY FIBROSIS
     Dosage: ?          OTHER DOSE:2 TABLETS WITH A M;?
     Route: 048
     Dates: start: 20190828
  3. VITAMIN B12 [Concomitant]
     Active Substance: CYANOCOBALAMIN
  4. SPIRONOLACTONE. [Concomitant]
     Active Substance: SPIRONOLACTONE
  5. VIT D [Concomitant]
     Active Substance: VITAMIN D NOS
  6. MELOXICAM. [Concomitant]
     Active Substance: MELOXICAM
  7. BIOTIN [Concomitant]
     Active Substance: BIOTIN
  8. XYZAL [Concomitant]
     Active Substance: LEVOCETIRIZINE DIHYDROCHLORIDE
  9. CLONAZEPAM. [Concomitant]
     Active Substance: CLONAZEPAM
  10. CENTRUM [Concomitant]
     Active Substance: VITAMINS
  11. ESOMEPRAZOLE MAG [Concomitant]
     Active Substance: ESOMEPRAZOLE MAGNESIUM
  12. AZELASTINE. [Concomitant]
     Active Substance: AZELASTINE HYDROCHLORIDE
  13. PREDNISONE. [Concomitant]
     Active Substance: PREDNISONE
  14. ESCITALOPRAM [Concomitant]
     Active Substance: ESCITALOPRAM OXALATE

REACTIONS (1)
  - Biopsy lung [None]

NARRATIVE: CASE EVENT DATE: 20200228
